FAERS Safety Report 23179467 (Version 2)
Quarter: 2023Q4

REPORT INFORMATION
  Report Type: Spontaneous
  Country: US (occurrence: US)
  Receive Date: 20231113
  Receipt Date: 20231215
  Transmission Date: 20240110
  Serious: No
  Sender: FDA-Public Use
  Company Number: US-SA-SAC20231102001154

PATIENT
  Age: 66 Year
  Sex: Female

DRUGS (11)
  1. DUPIXENT [Suspect]
     Active Substance: DUPILUMAB
     Indication: Dermatitis atopic
     Dosage: 300 MG, QOW
     Route: 058
  2. BUPROPION [Concomitant]
     Active Substance: BUPROPION
     Dosage: UNK
  3. COLESTIPOL [Concomitant]
     Active Substance: COLESTIPOL
     Dosage: UNK
  4. ESCITALOPRAM [Concomitant]
     Active Substance: ESCITALOPRAM OXALATE
     Dosage: UNK
  5. FAMOTIDINE [Concomitant]
     Active Substance: FAMOTIDINE
     Dosage: UNK
  6. JARDIANCE [Concomitant]
     Active Substance: EMPAGLIFLOZIN
     Dosage: UNK
  7. LOSARTAN POTASSIUM [Concomitant]
     Active Substance: LOSARTAN POTASSIUM
     Dosage: UNK
  8. METFORMIN [Concomitant]
     Active Substance: METFORMIN HYDROCHLORIDE
     Dosage: UNK
  9. METOPROLOL [Concomitant]
     Active Substance: METOPROLOL
     Dosage: UNK
  10. OZEMPIC [Concomitant]
     Active Substance: SEMAGLUTIDE
     Dosage: OZEMPIC (1 M SOP 4MG/3ML
  11. PANTOPRAZOLE [Concomitant]
     Active Substance: PANTOPRAZOLE
     Dosage: UNK

REACTIONS (5)
  - Depression [Unknown]
  - Sleep disorder due to a general medical condition [Unknown]
  - Injection site pain [Unknown]
  - Rash [Unknown]
  - Cataract operation [Unknown]

NARRATIVE: CASE EVENT DATE: 20231001
